FAERS Safety Report 4623641-5 (Version None)
Quarter: 2005Q1

REPORT INFORMATION
  Report Type: 
  Country: None (occurrence: None)
  Receive Date: 20050330
  Receipt Date: 20050315
  Transmission Date: 20050727
  Serious: Yes (Life-Threatening)
  Sender: FDA-Public Use
  Company Number: CLOF-10001

PATIENT
  Age: 17 Year
  Sex: Male

DRUGS (6)
  1. CLOLAR [Suspect]
     Indication: ACUTE LYMPHOCYTIC LEUKAEMIA
     Dosage: 112 MG QD; IV
     Route: 042
     Dates: start: 20050204, end: 20050208
  2. VANCOMYCIN [Concomitant]
  3. CEFTAZIDIME [Concomitant]
  4. FLUCONAZOLE [Concomitant]
  5. PENTAMIDINE [Concomitant]
  6. FLAGYL [Concomitant]

REACTIONS (9)
  - ATRIAL FIBRILLATION [None]
  - BLOOD UREA INCREASED [None]
  - BODY TEMPERATURE INCREASED [None]
  - BRADYCARDIA [None]
  - HAEMOGLOBIN DECREASED [None]
  - HYPERTENSION [None]
  - NEUTROPENIA [None]
  - TACHYCARDIA [None]
  - VENTRICULAR DYSFUNCTION [None]
